FAERS Safety Report 12040420 (Version 2)
Quarter: 2016Q1

REPORT INFORMATION
  Report Type: Spontaneous
  Country: US (occurrence: US)
  Receive Date: 20160208
  Receipt Date: 20160209
  Transmission Date: 20160526
  Serious: Yes (Other)
  Sender: FDA-Public Use
  Company Number: US-SA-2016SA020959

PATIENT
  Age: 58 Year
  Sex: Female
  Weight: 97.6 kg

DRUGS (28)
  1. VFEND [Suspect]
     Active Substance: VORICONAZOLE
     Route: 065
  2. CYTOXAN [Suspect]
     Active Substance: CYCLOPHOSPHAMIDE
     Indication: BONE MARROW CONDITIONING REGIMEN
     Route: 065
     Dates: start: 20150327
  3. PANTOPRAZOLE [Concomitant]
     Active Substance: PANTOPRAZOLE SODIUM
     Route: 048
  4. VFEND [Concomitant]
     Active Substance: VORICONAZOLE
     Route: 048
  5. PROTONIX [Suspect]
     Active Substance: PANTOPRAZOLE SODIUM
     Route: 065
  6. CHOLECALCIFEROL [Concomitant]
     Active Substance: CHOLECALCIFEROL
     Dosage: DOSE:1000 UNIT(S)
     Route: 048
  7. DAPSONE. [Concomitant]
     Active Substance: DAPSONE
     Route: 048
  8. VFEND [Concomitant]
     Active Substance: VORICONAZOLE
     Route: 048
  9. NEURONTIN [Suspect]
     Active Substance: GABAPENTIN
     Route: 065
  10. FLUDARABINE PHOSPHATE. [Suspect]
     Active Substance: FLUDARABINE PHOSPHATE
     Indication: BONE MARROW CONDITIONING REGIMEN
     Route: 065
     Dates: start: 20150327
  11. COMPAZINE [Concomitant]
     Active Substance: PROCHLORPERAZINE MALEATE
     Dosage: EVERY 6 HOUR AS NEEDED
     Route: 048
  12. DAPSONE. [Concomitant]
     Active Substance: DAPSONE
     Route: 048
  13. NORVASC [Suspect]
     Active Substance: AMLODIPINE BESYLATE
     Route: 065
  14. HYDRODIURIL [Concomitant]
     Active Substance: HYDROCHLOROTHIAZIDE
     Route: 048
  15. CAMPATH [Suspect]
     Active Substance: ALEMTUZUMAB
     Indication: BONE MARROW CONDITIONING REGIMEN
     Route: 042
     Dates: start: 20150327
  16. CYTOXAN [Suspect]
     Active Substance: CYCLOPHOSPHAMIDE
     Indication: BONE MARROW CONDITIONING REGIMEN
     Route: 065
     Dates: start: 2015
  17. ANTI-THYMOCYTE GLOBULIN (RABBIT)/RABBIT ANTI-HUMAN THYMOCYTE IMMUNOGLOBULIN [Suspect]
     Active Substance: LAPINE T-LYMPHOCYTE IMMUNE GLOBULIN
     Route: 065
     Dates: start: 2015
  18. NORVASC [Concomitant]
     Active Substance: AMLODIPINE BESYLATE
     Dosage: 5 MG TOTAL
     Route: 048
  19. MESNA. [Concomitant]
     Active Substance: MESNA
     Dates: start: 2015
  20. CYCLOSPORINE. [Concomitant]
     Active Substance: CYCLOSPORINE
  21. ZOVIRAX [Concomitant]
     Active Substance: ACYCLOVIR
     Dosage: 400 MG TOTAL
     Route: 048
  22. VFEND [Concomitant]
     Active Substance: VORICONAZOLE
     Route: 048
  23. CYCLOSPORINE. [Concomitant]
     Active Substance: CYCLOSPORINE
  24. FLUDARABINE PHOSPHATE. [Suspect]
     Active Substance: FLUDARABINE PHOSPHATE
     Indication: BONE MARROW CONDITIONING REGIMEN
     Route: 065
     Dates: start: 2015
  25. NEURONTIN [Concomitant]
     Active Substance: GABAPENTIN
     Route: 048
  26. CYTOXAN [Suspect]
     Active Substance: CYCLOPHOSPHAMIDE
     Indication: BONE MARROW CONDITIONING REGIMEN
     Route: 065
     Dates: start: 2015
  27. MAGNESIUM OXIDE. [Concomitant]
     Active Substance: MAGNESIUM OXIDE
     Route: 048
  28. MICRO-K [Concomitant]
     Active Substance: POTASSIUM CHLORIDE
     Route: 048

REACTIONS (11)
  - Haematuria [Unknown]
  - Cystitis [Unknown]
  - Human polyomavirus infection [None]
  - Haemorrhage urinary tract [Unknown]
  - Oedema peripheral [Unknown]
  - Pollakiuria [Unknown]
  - Fatigue [Unknown]
  - Pyrexia [Unknown]
  - Dysuria [Unknown]
  - Influenza [None]
  - Micturition urgency [Unknown]

NARRATIVE: CASE EVENT DATE: 2015
